FAERS Safety Report 6614075-2 (Version None)
Quarter: 2010Q1

REPORT INFORMATION
  Report Type: 
  Country: None (occurrence: None)
  Receive Date: 20100304
  Receipt Date: 20100222
  Transmission Date: 20100710
  Serious: Yes (Hospitalization, Other)
  Sender: FDA-Public Use
  Company Number: PHEH2007US11288

PATIENT
  Sex: Female
  Weight: 52.2 kg

DRUGS (48)
  1. ZOMETA [Suspect]
     Indication: MULTIPLE MYELOMA
     Dosage: 4 MG, UNK
     Dates: end: 20050701
  2. AREDIA [Suspect]
     Dosage: 90 MG, UNK
     Dates: start: 20010920
  3. DEXAMETHASONE 4MG TAB [Concomitant]
     Dosage: 4MG / 5 TABLETS DAILY , FOR 5 DAYS
  4. ZOLOFT [Concomitant]
     Dosage: 50 MG / 1 TABLET EVERY NIGHT AT BEDTIME
  5. NASONEX [Concomitant]
     Dosage: 50 MCG / INHALE 2 SPRAYS EACH NOSTRIL DAILY
     Route: 045
  6. CHLORHEXIDINE GLUCONATE [Concomitant]
     Dosage: UNK / RINSE 1/2 OZ 2 X DAY
  7. NEURONTIN [Concomitant]
     Indication: MUSCULOSKELETAL PAIN
     Dosage: 200 MG, UNK
  8. MAGIC MOUTHWASH [Concomitant]
     Dosage: UNK
  9. AUGMENTIN '125' [Concomitant]
     Dosage: 875 MG, BID
     Route: 048
  10. ONDANSETRON [Concomitant]
     Dosage: 24 MG, DAILY FOR 3 DAYS
     Route: 048
  11. ACYCLOVIR [Concomitant]
     Dosage: 800 MG, Q12H
     Route: 048
  12. FLUCONAZOLE [Concomitant]
     Dosage: 400 MG, QD
     Route: 048
  13. GABAPENTIN [Suspect]
     Dosage: 200 MG, BID
     Route: 048
  14. HYDROCORTISONE [Suspect]
     Dosage: 250 MG, ONCE/SINGLE
     Route: 042
  15. DIPHENHYDRAMINE HCL [Suspect]
     Dosage: 50 MG, ONCE/SINGLE
  16. MELPHALAN [Concomitant]
     Dosage: 295 MG, ONCE/SINGLE
  17. IBUPROFEN [Concomitant]
     Dosage: 200 MG, UNK
     Route: 048
  18. UNASYN [Concomitant]
     Dosage: 1.5 G, UNK
     Route: 042
  19. UNASYN [Concomitant]
     Dosage: 3 G, Q6H
     Route: 042
  20. COMPAZINE [Concomitant]
     Dosage: 10 MG, Q 4 HOURS PRN
     Route: 048
  21. POTASSIUM [Concomitant]
     Dosage: 80 MEQ, QD
  22. NEUPOGEN [Concomitant]
     Dosage: 300 MG, UNK
  23. ZOSYN [Concomitant]
  24. NEUPOGEN [Concomitant]
     Dosage: 0.3 MG, UNK
     Route: 042
  25. CEFEPIME [Concomitant]
     Dosage: 1 G, Q8H
     Route: 042
  26. ZOFRAN [Suspect]
     Dosage: 8 MG, TID
     Route: 042
  27. CIPRO [Concomitant]
     Dosage: 500 MG, TID
  28. CYTOXAN [Concomitant]
  29. DOXIL [Concomitant]
     Dosage: UNK
     Dates: start: 20031001
  30. PEN-VEE K [Concomitant]
     Dosage: 500 MG, BID
     Route: 042
     Dates: start: 20070917
  31. CHANTIX [Concomitant]
  32. TORADOL [Concomitant]
  33. IRON DEXTRAN [Concomitant]
     Dosage: 800 MG, UNK
     Route: 042
  34. ARANESP [Concomitant]
  35. VINCRISTINE [Concomitant]
  36. DOXIL [Concomitant]
     Dosage: 55 MG, UNK
  37. CELEBREX [Concomitant]
  38. AMOXICILLIN [Concomitant]
  39. PROCRIT                            /00909301/ [Concomitant]
     Indication: ANAEMIA
  40. PENICILLIN ^GRUNENTHAL^ [Concomitant]
  41. SKELAXIN [Concomitant]
  42. NABUMETONE [Concomitant]
  43. OXYCONTIN [Concomitant]
  44. CLINDAMYCIN [Concomitant]
  45. NEUPOGEN [Concomitant]
  46. CIPRO [Concomitant]
     Dosage: 500 MG, UNK
  47. DIFLUCORTOLONE VALERATE [Concomitant]
  48. THALIDOMIDE [Concomitant]

REACTIONS (30)
  - ABDOMINAL PAIN [None]
  - ABSCESS NECK [None]
  - ABSCESS ORAL [None]
  - ANAEMIA [None]
  - ANXIETY [None]
  - CANDIDIASIS [None]
  - CARDIAC FAILURE CONGESTIVE [None]
  - DEBRIDEMENT [None]
  - DECREASED INTEREST [None]
  - DEFORMITY [None]
  - DEHYDRATION [None]
  - DENTAL OPERATION [None]
  - DISCOMFORT [None]
  - EMOTIONAL DISTRESS [None]
  - FALL [None]
  - GINGIVAL DISORDER [None]
  - HYPOPHAGIA [None]
  - IMPAIRED HEALING [None]
  - INJURY [None]
  - JAW OPERATION [None]
  - LIFE EXPECTANCY SHORTENED [None]
  - MUCOSAL INFLAMMATION [None]
  - NAUSEA [None]
  - ORAL DISORDER [None]
  - ORAL SURGERY [None]
  - OSTEOMYELITIS [None]
  - OSTEONECROSIS [None]
  - PAIN [None]
  - TOOTH EXTRACTION [None]
  - VOMITING [None]
